FAERS Safety Report 14714891 (Version 7)
Quarter: 2018Q2

REPORT INFORMATION
  Report Type: Report from Study
  Country: US (occurrence: US)
  Receive Date: 20180404
  Receipt Date: 20180629
  Transmission Date: 20180711
  Serious: Yes (Other)
  Sender: FDA-Public Use
  Company Number: US-PFIZER INC-2018137308

PATIENT
  Age: 56 Year
  Sex: Female

DRUGS (4)
  1. IBRANCE [Suspect]
     Active Substance: PALBOCICLIB
     Indication: BREAST CANCER
     Dosage: 125 MG, CYCLIC, (DAILY; 3 WEEKS ON/1 WEEK OFF)
     Route: 048
     Dates: start: 20180302, end: 20180324
  2. IBRANCE [Suspect]
     Active Substance: PALBOCICLIB
     Dosage: 100 MG, CYCLIC, (DAILY; 3 WEEKS ON, 1 WEEK OFF / 21 DAYS AND OFF 7 DAYS)
     Route: 048
     Dates: start: 20180410
  3. IBRANCE [Suspect]
     Active Substance: PALBOCICLIB
     Dosage: 100 MG, DAILY
     Route: 048
     Dates: start: 20180330
  4. LETROZOLE. [Concomitant]
     Active Substance: LETROZOLE
     Dosage: UNK, DAILY

REACTIONS (16)
  - Stomatitis [Recovering/Resolving]
  - Constipation [Recovering/Resolving]
  - Weight decreased [Recovering/Resolving]
  - Influenza like illness [Not Recovered/Not Resolved]
  - Bone pain [Unknown]
  - Fatigue [Not Recovered/Not Resolved]
  - Decreased appetite [Recovering/Resolving]
  - Dry skin [Unknown]
  - Abdominal discomfort [Recovering/Resolving]
  - Contusion [Unknown]
  - Alopecia [Unknown]
  - Dyspepsia [Recovering/Resolving]
  - Hot flush [Not Recovered/Not Resolved]
  - Bone marrow failure [Recovering/Resolving]
  - Nausea [Unknown]
  - Headache [Unknown]

NARRATIVE: CASE EVENT DATE: 2018
